FAERS Safety Report 26176116 (Version 1)
Quarter: 2025Q4

REPORT INFORMATION
  Report Type: Spontaneous
  Country: US (occurrence: None)
  Receive Date: 20251218
  Receipt Date: 20251218
  Transmission Date: 20260117
  Serious: Yes (Other)
  Sender: FDA-CTU
  Company Number: None

PATIENT
  Age: 41 Year
  Sex: Female

DRUGS (1)
  1. PIQRAY [Suspect]
     Active Substance: ALPELISIB
     Indication: Breast cancer
     Dosage: FREQUENCY : DAILY;
     Route: 048

REACTIONS (6)
  - Acne [None]
  - Swelling face [None]
  - Rash [None]
  - Urticaria [None]
  - Lip swelling [None]
  - Swelling of eyelid [None]

NARRATIVE: CASE EVENT DATE: 20251208
